FAERS Safety Report 10677903 (Version 1)
Quarter: 2014Q4

REPORT INFORMATION
  Report Type: Spontaneous
  Country: US (occurrence: None)
  Receive Date: 20141223
  Receipt Date: 20141223
  Transmission Date: 20150529
  Serious: Yes (Hospitalization)
  Sender: FDA-Public Use
  Company Number: US-001406

PATIENT
  Sex: Female
  Weight: 39.46 kg

DRUGS (1)
  1. GATTEX [Suspect]
     Active Substance: TEDUGLUTIDE\WATER
     Indication: SHORT-BOWEL SYNDROME
     Route: 058
     Dates: start: 20140806, end: 20141205

REACTIONS (7)
  - Rectal haemorrhage [None]
  - Diarrhoea [None]
  - Malaise [None]
  - Pain [None]
  - Incorrect dose administered [None]
  - Rash [None]
  - Weight decreased [None]

NARRATIVE: CASE EVENT DATE: 2014
